FAERS Safety Report 4371660-9 (Version None)
Quarter: 2004Q2

REPORT INFORMATION
  Report Type: 
  Country: None (occurrence: None)
  Receive Date: 20040603
  Receipt Date: 20040603
  Transmission Date: 20050107
  Serious: Yes (Other)
  Sender: FDA-Public Use
  Company Number: None

PATIENT
  Age: 37 Year
  Sex: Female
  Weight: 54.4316 kg

DRUGS (2)
  1. NAPROXEN [Suspect]
     Indication: ANTIINFLAMMATORY THERAPY
     Dosage: SPORADICALLY
     Dates: start: 20040202, end: 20040602
  2. ZOLOFT [Suspect]
     Indication: DEPRESSION

REACTIONS (4)
  - ABNORMAL BEHAVIOUR [None]
  - FEELING JITTERY [None]
  - INSOMNIA [None]
  - MEDICATION ERROR [None]
